FAERS Safety Report 4952315-6 (Version None)
Quarter: 2006Q1

REPORT INFORMATION
  Report Type: 
  Country: None (occurrence: None)
  Receive Date: 20060320
  Receipt Date: 20060309
  Transmission Date: 20060701
  Serious: Yes (Other)
  Sender: FDA-Public Use
  Company Number: 2006033818

PATIENT
  Weight: 13.6079 kg

DRUGS (1)
  1. SUDAFED (PSEUDOEPHEDRINE) [Suspect]
     Dosage: TWO TABLETS, PRN, PLACENTAL
     Route: 064
     Dates: start: 20010101

REACTIONS (2)
  - DRUG EXPOSURE DURING PREGNANCY [None]
  - GASTROENTERITIS [None]
